FAERS Safety Report 8146881-X (Version None)
Quarter: 2012Q1

REPORT INFORMATION
  Report Type: 
  Country: None (occurrence: None)
  Receive Date: 20120217
  Receipt Date: 20120208
  Transmission Date: 20120608
  Serious: Yes (Hospitalization)
  Sender: FDA-Public Use
  Company Number: DK-ABBOTT-12P-044-0902811-01

PATIENT
  Sex: Female

DRUGS (7)
  1. CALCIUM D3 [Concomitant]
     Indication: STEROID THERAPY
     Dates: start: 20091125
  2. FERROUS SULFATE TAB [Concomitant]
     Indication: IRON DEFICIENCY
     Dates: start: 20091126
  3. HUMIRA [Suspect]
     Indication: CROHN'S DISEASE
     Route: 058
     Dates: start: 20090819, end: 20090819
  4. PINEX [Concomitant]
     Indication: PAIN
     Dates: start: 20090330
  5. HUMIRA [Suspect]
     Route: 058
     Dates: end: 20100216
  6. PREDNISOLONE [Concomitant]
     Indication: CROHN'S DISEASE
     Dates: start: 20091125
  7. MULTITABS [Concomitant]
     Indication: VITAMIN SUPPLEMENTATION
     Dates: start: 20090808

REACTIONS (1)
  - CROHN'S DISEASE [None]
